FAERS Safety Report 19935932 (Version 3)
Quarter: 2022Q1

REPORT INFORMATION
  Report Type: Spontaneous
  Country: GB (occurrence: GB)
  Receive Date: 20211008
  Receipt Date: 20220324
  Transmission Date: 20220423
  Serious: Yes (Life-Threatening, Hospitalization, Disabling, Other)
  Sender: FDA-Public Use
  Company Number: None

PATIENT
  Age: 29 Year
  Sex: Female

DRUGS (28)
  1. COCODAMOL [Suspect]
     Active Substance: ACETAMINOPHEN\CODEINE PHOSPHATE
     Indication: Pelvic pain
     Dosage: 4 MILLIGRAM DAILY; GESTATION PERIOD AT TIME OF EXPOSURE: 2 TRIMESTER , 4 MILLIGRAM, ONCE A DAY
     Route: 048
  2. COCODAMOL [Suspect]
     Active Substance: ACETAMINOPHEN\CODEINE PHOSPHATE
     Indication: Pelvic girdle pain
     Dosage: 4, QID, GESTATION PERIOD: 2 (TRIMESTER), 16 MG
     Route: 048
  3. COCODAMOL [Suspect]
     Active Substance: ACETAMINOPHEN\CODEINE PHOSPHATE
     Indication: Product used for unknown indication
     Dosage: UNK, FOUR TIMES/DAY , DURATION : 6 MONTHS
     Route: 048
  4. COCODAMOL [Suspect]
     Active Substance: ACETAMINOPHEN\CODEINE PHOSPHATE
     Dosage: UNK , DURATION : 6 MONTHS
     Route: 064
  5. COCODAMOL [Suspect]
     Active Substance: ACETAMINOPHEN\CODEINE PHOSPHATE
     Dosage: SECOND TRIMESTER , DURATION : 6 MONTHS
     Route: 048
  6. COCODAMOL [Suspect]
     Active Substance: ACETAMINOPHEN\CODEINE PHOSPHATE
     Dosage: 16 MILLIGRAM DAILY; 16 MILLIGRAM, ONCE A DAY , DURATION : 6 MONTHS
     Route: 048
  7. ACETAMINOPHEN [Suspect]
     Active Substance: ACETAMINOPHEN
     Indication: Pelvic pain
     Dosage: UP TO FOUR DOSES PER DAY, 16 MG
     Route: 048
  8. ACETAMINOPHEN [Suspect]
     Active Substance: ACETAMINOPHEN
     Indication: Product used for unknown indication
     Dosage: 4 MILLIGRAM DAILY; 4 MG, QD
     Route: 048
  9. ACETAMINOPHEN [Suspect]
     Active Substance: ACETAMINOPHEN
     Dosage: 4 MILLIGRAM DAILY; 4 MILLIGRAM, ONCE A DAY , DURATION : 180 DAYS
     Route: 048
  10. ACETAMINOPHEN [Suspect]
     Active Substance: ACETAMINOPHEN
     Dosage: 16 MILLIGRAM DAILY; 4 MG, QID , THERAPY START DATE AND END DATE : ASKU
     Route: 048
  11. ACETAMINOPHEN [Suspect]
     Active Substance: ACETAMINOPHEN
     Dosage: 4 MILLIGRAM, FOUR TIMES/DAY , UNIT DOSE : 16 MG  , DURATION : 6 MONTHS
     Route: 048
  12. CODEINE PHOSPHATE [Suspect]
     Active Substance: CODEINE PHOSPHATE
     Indication: Pelvic pain
     Dosage: 4 MILLIGRAM DAILY; THERAPY START AND END DATE: ASKU, 4 MG, QD
     Route: 048
  13. CODEINE PHOSPHATE [Suspect]
     Active Substance: CODEINE PHOSPHATE
     Dosage: 16 MILLIGRAM DAILY; THERAPY START AND END DATE: ASKU, 16 MG, QD
     Route: 048
  14. CODEINE PHOSPHATE [Suspect]
     Active Substance: CODEINE PHOSPHATE
     Dosage: UNK, QID , THERAPY START DATE AND END DATE : ASKU
     Route: 048
  15. CETIRIZINE HYDROCHLORIDE [Suspect]
     Active Substance: CETIRIZINE HYDROCHLORIDE
     Indication: Product used for unknown indication
     Dosage: 10 MILLIGRAM DAILY; 10 MILLIGRAM, QD
     Route: 048
     Dates: start: 20180528, end: 20180601
  16. PERFALGAN [Suspect]
     Active Substance: ACETAMINOPHEN
     Indication: Back disorder
     Dosage: DURATION : 366 DAYS , UNK
     Route: 065
  17. PERFALGAN [Suspect]
     Active Substance: ACETAMINOPHEN
     Indication: Pelvic pain
     Dosage: UNK (UP TO FOUR TIMES A DAY)
     Route: 065
  18. ACETAMINOPHEN [Suspect]
     Active Substance: ACETAMINOPHEN
     Dosage: 16 MILLIGRAM DAILY; 4 MILLIGRAM, FOUR TIMES/DAY
     Route: 048
  19. CEPHRADINE [Concomitant]
     Active Substance: CEPHRADINE
     Indication: Product used for unknown indication
     Dosage: UNK
     Route: 065
  20. CEPHRADINE [Concomitant]
     Active Substance: CEPHRADINE
     Route: 064
  21. CEPHRADINE [Concomitant]
     Active Substance: CEPHRADINE
     Dosage: UNK
  22. ENOXAPARIN [Concomitant]
     Active Substance: ENOXAPARIN
     Indication: Product used for unknown indication
     Dosage: UNK
     Route: 065
  23. ENOXAPARIN [Concomitant]
     Active Substance: ENOXAPARIN
     Route: 064
  24. FLUOXETINE [Concomitant]
     Active Substance: FLUOXETINE HYDROCHLORIDE
     Indication: Product used for unknown indication
     Dosage: UNK
     Route: 064
  25. FLUOXETINE [Concomitant]
     Active Substance: FLUOXETINE HYDROCHLORIDE
     Dosage: UNK
     Route: 065
  26. METRONIDAZOLE [Concomitant]
     Active Substance: METRONIDAZOLE
     Indication: Pyelonephritis
     Dosage: ADDITIONAL INFO : ACTION TAKEN- UNKNOWN
     Route: 065
  27. METRONIDAZOLE [Concomitant]
     Active Substance: METRONIDAZOLE
     Indication: Pyelonephritis
     Route: 065
  28. MORPHINE HYDROCHLORIDE [Concomitant]
     Active Substance: MORPHINE HYDROCHLORIDE
     Dosage: UNK

REACTIONS (24)
  - Maternal exposure during pregnancy [Recovered/Resolved]
  - Feeling guilty [Unknown]
  - Hepatic failure [Recovered/Resolved]
  - Accidental overdose [Recovered/Resolved]
  - Consciousness fluctuating [Unknown]
  - Developmental delay [Unknown]
  - Exposure during pregnancy [Recovered/Resolved]
  - Asthenia [Unknown]
  - Fear [Unknown]
  - Live birth [Unknown]
  - Caesarean section [Unknown]
  - Liver disorder [Recovered/Resolved]
  - Uterine hypertonus [Unknown]
  - Depressed level of consciousness [Unknown]
  - Hepatotoxicity [Recovered/Resolved with Sequelae]
  - Fear of death [Unknown]
  - Asthenopia [Unknown]
  - Premature labour [Unknown]
  - Crying [Unknown]
  - Foetal monitoring abnormal [Unknown]
  - Gait inability [Unknown]
  - Malaise [Recovered/Resolved]
  - Incorrect product administration duration [Unknown]
  - Mania [Recovering/Resolving]

NARRATIVE: CASE EVENT DATE: 20180601
